FAERS Safety Report 23304399 (Version 1)
Quarter: 2023Q4

REPORT INFORMATION
  Report Type: Spontaneous
  Country: JP (occurrence: JP)
  Receive Date: 20231218
  Receipt Date: 20231218
  Transmission Date: 20240109
  Serious: Yes (Life-Threatening, Hospitalization, Other)
  Sender: FDA-Public Use
  Company Number: JP-EPICPHARMA-JP-2023EPCLIT01826

PATIENT
  Age: 61 Year
  Sex: Male

DRUGS (6)
  1. CARBOPLATIN [Suspect]
     Active Substance: CARBOPLATIN
     Indication: Non-small cell lung cancer
     Route: 065
  2. PACLITAXEL [Suspect]
     Active Substance: PACLITAXEL
     Indication: Non-small cell lung cancer
     Route: 065
  3. NIVOLUMAB [Suspect]
     Active Substance: NIVOLUMAB
     Indication: Non-small cell lung cancer
     Dosage: 360 MG/BODY
     Route: 065
  4. IPILIMUMAB [Suspect]
     Active Substance: IPILIMUMAB
     Indication: Non-small cell lung cancer
     Dosage: 1 MG/KG
     Route: 065
  5. EPINEPHRINE [Concomitant]
     Active Substance: EPINEPHRINE
     Indication: Ventricular fibrillation
     Route: 042
  6. EPINEPHRINE [Concomitant]
     Active Substance: EPINEPHRINE
     Route: 030

REACTIONS (4)
  - Cardiac arrest [Recovered/Resolved]
  - Infusion related reaction [Recovered/Resolved]
  - Obstructive airways disorder [Recovered/Resolved]
  - Product use in unapproved indication [Unknown]
